FAERS Safety Report 20224366 (Version 2)
Quarter: 2022Q1

REPORT INFORMATION
  Report Type: Report from Study
  Country: US (occurrence: US)
  Receive Date: 20211223
  Receipt Date: 20220127
  Transmission Date: 20220423
  Serious: Yes (Other)
  Sender: FDA-Public Use
  Company Number: US-JNJFOC-20211207954

PATIENT
  Age: 62 Year
  Sex: Female
  Weight: 83.990 kg

DRUGS (36)
  1. PONESIMOD [Suspect]
     Active Substance: PONESIMOD
     Indication: Product used for unknown indication
     Route: 048
     Dates: start: 20211103, end: 20211210
  2. LIALDA [Concomitant]
     Active Substance: MESALAMINE
     Indication: Colitis ulcerative
     Dosage: 4 CAP AM
  3. ARICEPT [Concomitant]
     Active Substance: DONEPEZIL HYDROCHLORIDE
     Dosage: 10 MG PM
  4. ASPIRIN [Concomitant]
     Active Substance: ASPIRIN
     Dosage: 81 MG PM (BLOOD THINNER)
  5. ASTHALIN [Concomitant]
     Indication: Asthma
     Dosage: 137 UG 2 SPRAYS TWICE DAILY
  6. BACLOFEN [Concomitant]
     Active Substance: BACLOFEN
     Dosage: AM,, NOON, PM 20 MG (CALM MUSCLES)
  7. SYMBICORT [Concomitant]
     Active Substance: BUDESONIDE\FORMOTEROL FUMARATE DIHYDRATE
     Indication: Asthma
     Dosage: 2 PUFFS TWICE DAILY 160/4.5
  8. CELEXA [Concomitant]
     Active Substance: CITALOPRAM HYDROBROMIDE
     Dosage: AM 20 MG
  9. CHLORTHALIDONE [Concomitant]
     Active Substance: CHLORTHALIDONE
     Dosage: 9 AM 25 MG
  10. CLARITIN [Concomitant]
     Active Substance: LORATADINE
     Indication: Multiple allergies
     Dosage: IN AM
  11. DALFAMPRIDINE [Concomitant]
     Active Substance: DALFAMPRIDINE
     Indication: Multiple sclerosis
     Dosage: AM AND PM
  12. FAMOTIDINE [Concomitant]
     Active Substance: FAMOTIDINE
     Indication: Gastrooesophageal reflux disease
  13. FOLIC ACID [Concomitant]
     Active Substance: FOLIC ACID
     Dosage: 1 MG AM
  14. KETOROLAC [Concomitant]
     Active Substance: KETOROLAC TROMETHAMINE
     Indication: Multiple allergies
     Dosage: 0.4% 2 DROPS IN EACH EYE FOR DRYNESS
  15. LEVOTHYROXINE [Concomitant]
     Active Substance: LEVOTHYROXINE
     Dosage: 75 UG ON EMPTY STOMACH
  16. LISINOPRIL [Concomitant]
     Active Substance: LISINOPRIL
     Indication: Blood pressure measurement
  17. LUTEIN [Concomitant]
     Active Substance: LUTEIN
     Indication: Eye disorder
     Dosage: 20 MG PM
  18. MALEIC ACID [Concomitant]
     Active Substance: MALEIC ACID
     Indication: Fibromyalgia
     Dosage: 625 MG AM AND PM
  19. NASONEX [Concomitant]
     Active Substance: MOMETASONE FUROATE
     Dosage: AM 2 PUFFS EACH NOSTRIL
  20. NEURONTIN [Concomitant]
     Active Substance: GABAPENTIN
     Indication: Neuropathy peripheral
     Dosage: AM, NOON AND 10 PM 600 MG
  21. PILOCARPINE [Concomitant]
     Active Substance: PILOCARPINE
     Dosage: AM, NOON AND PM
  22. POLYETHYLENE GLYCOL [Concomitant]
     Active Substance: POLYETHYLENE GLYCOL
     Dosage: 3340 USP POWDER
  23. POTASSIUM CHLORIDE [Concomitant]
     Active Substance: POTASSIUM CHLORIDE
  24. PRAVASTATIN [Concomitant]
     Active Substance: PRAVASTATIN
     Indication: Blood cholesterol
     Dosage: 20 MG PM
  25. SINGULAIR [Concomitant]
     Active Substance: MONTELUKAST SODIUM
     Indication: Asthma
     Dosage: PM
  26. ROPINIROLE [Concomitant]
     Active Substance: ROPINIROLE
     Indication: Restless legs syndrome
  27. TRAMADOL [Concomitant]
     Active Substance: TRAMADOL
     Indication: Pain
  28. MELATONIN [Concomitant]
     Active Substance: MELATONIN
  29. VITAMINS [Concomitant]
     Active Substance: VITAMINS
  30. VITAMIN E-200 [Concomitant]
  31. VITAMIN D3 [Concomitant]
     Active Substance: CHOLECALCIFEROL
  32. ASCORBIC ACID [Concomitant]
     Active Substance: ASCORBIC ACID
  33. IRON [Concomitant]
     Active Substance: IRON
  34. NITROGLYCERIN [Concomitant]
     Active Substance: NITROGLYCERIN
     Indication: Chest pain
     Dosage: AS NEEDED
  35. PROAIR HFA [Concomitant]
     Active Substance: ALBUTEROL SULFATE
     Indication: Asthma
     Dosage: 8.5 (UNKNOWN UNITS)?AS NEEDED
  36. DUONEB [Concomitant]
     Active Substance: ALBUTEROL SULFATE\IPRATROPIUM BROMIDE
     Indication: Asthma
     Dosage: AS NEEDED

REACTIONS (1)
  - Retinal oedema [Recovering/Resolving]

NARRATIVE: CASE EVENT DATE: 20211201
